FAERS Safety Report 9177667 (Version 1)
Quarter: 2013Q1

REPORT INFORMATION
  Report Type: Spontaneous
  Country: US (occurrence: US)
  Receive Date: 20130321
  Receipt Date: 20130321
  Transmission Date: 20140127
  Serious: No
  Sender: FDA-Public Use
  Company Number: US-B.I. PHARMACEUTICALS,INC./RIDGEFIELD-2013-BI-06730PF

PATIENT
  Sex: Male
  Weight: 109 kg

DRUGS (5)
  1. SPIRIVA [Suspect]
     Dosage: 18 MCG
     Route: 055
  2. PEPCID [Concomitant]
  3. ADVIL [Concomitant]
  4. ASPIRIN [Concomitant]
  5. ZYRTEC [Concomitant]

REACTIONS (5)
  - Back pain [Unknown]
  - Musculoskeletal pain [Unknown]
  - Pain in extremity [Unknown]
  - Dyspnoea [Unknown]
  - Wheezing [Unknown]
